FAERS Safety Report 18366903 (Version 2)
Quarter: 2020Q4

REPORT INFORMATION
  Report Type: Report from Study
  Country: US (occurrence: US)
  Receive Date: 20201009
  Receipt Date: 20201106
  Transmission Date: 20210114
  Serious: Yes (Life-Threatening, Hospitalization, Other)
  Sender: FDA-Public Use
  Company Number: US-JNJFOC-20200942199

PATIENT
  Age: 65 Year
  Sex: Female
  Weight: 64.47 kg

DRUGS (3)
  1. UPTRAVI [Suspect]
     Active Substance: SELEXIPAG
     Route: 048
  2. ADEMPAS [Suspect]
     Active Substance: RIOCIGUAT
     Indication: PRODUCT USED FOR UNKNOWN INDICATION
  3. UPTRAVI [Suspect]
     Active Substance: SELEXIPAG
     Indication: PULMONARY ARTERIAL HYPERTENSION
     Route: 048

REACTIONS (11)
  - Dehydration [Unknown]
  - Anxiety [Unknown]
  - Malaise [Unknown]
  - Hypotension [Unknown]
  - Urinary tract infection [Unknown]
  - COVID-19 [Recovering/Resolving]
  - Fluid retention [Unknown]
  - Gastric disorder [Unknown]
  - Headache [Unknown]
  - Oxygen saturation decreased [Unknown]
  - Dyspnoea [Unknown]

NARRATIVE: CASE EVENT DATE: 202009
